FAERS Safety Report 6110317-0 (Version None)
Quarter: 2009Q1

REPORT INFORMATION
  Report Type: 
  Country: None (occurrence: None)
  Receive Date: 20090310
  Receipt Date: 20090226
  Transmission Date: 20090719
  Serious: Yes (Other)
  Sender: FDA-Public Use
  Company Number: DE-PFIZER INC-2009175522

PATIENT

DRUGS (1)
  1. SOBELIN [Suspect]
     Indication: ERYSIPELAS
     Dosage: 1200 MG, 1X/DAY
     Route: 048
     Dates: start: 20090116

REACTIONS (1)
  - OESOPHAGITIS [None]
